FAERS Safety Report 21471524 (Version 1)
Quarter: 2022Q4

REPORT INFORMATION
  Report Type: Spontaneous
  Country: US (occurrence: None)
  Receive Date: 20221017
  Receipt Date: 20221017
  Transmission Date: 20230113
  Serious: Yes (Hospitalization, Other)
  Sender: FDA-Public Use
  Company Number: None

PATIENT
  Age: 56 Year
  Sex: Female
  Weight: 56.25 kg

DRUGS (2)
  1. TAMOXIFEN [Suspect]
     Active Substance: TAMOXIFEN
     Indication: Breast cancer recurrent
     Dosage: FREQUENCY : DAILY;?
     Route: 048
     Dates: start: 20190401, end: 20220901
  2. VITAMIN D [Concomitant]
     Active Substance: VITAMIN D NOS

REACTIONS (11)
  - Headache [None]
  - Feeling hot [None]
  - Disturbance in attention [None]
  - Vertigo [None]
  - Impaired driving ability [None]
  - Impaired work ability [None]
  - Dry eye [None]
  - Ear discomfort [None]
  - Asthenia [None]
  - Product quality issue [None]
  - Product lot number issue [None]

NARRATIVE: CASE EVENT DATE: 20220627
